FAERS Safety Report 5848412-3 (Version None)
Quarter: 2008Q3

REPORT INFORMATION
  Report Type: 
  Country: None (occurrence: None)
  Receive Date: 20080818
  Receipt Date: 20070904
  Transmission Date: 20090109
  Serious: Yes (Death)
  Sender: FDA-Public Use
  Company Number: DE-ELI_LILLY_AND_COMPANY-DE200706003691

PATIENT
  Age: 77 Year
  Sex: Female
  Weight: 65 kg

DRUGS (1)
  1. DULOXETINE HYDROCHLORIDE [Suspect]
     Indication: INCONTINENCE
     Dosage: 20 MG, UNKNOWN
     Route: 048
     Dates: start: 20060402

REACTIONS (1)
  - ROAD TRAFFIC ACCIDENT [None]
